FAERS Safety Report 7372468-2 (Version None)
Quarter: 2011Q1

REPORT INFORMATION
  Report Type: 
  Country: None (occurrence: None)
  Receive Date: 20110324
  Receipt Date: 20110311
  Transmission Date: 20110831
  Serious: Yes (Hospitalization)
  Sender: FDA-Public Use
  Company Number: US-ACTELION-A-NJ2011-46341

PATIENT

DRUGS (4)
  1. COUMADIN [Suspect]
  2. REVATIO [Concomitant]
  3. TRACLEER [Suspect]
     Indication: PULMONARY ARTERIAL HYPERTENSION
     Dosage: UNK
     Route: 048
     Dates: start: 20041001
  4. CALCIUM CHANNEL BLOCKERS [Concomitant]

REACTIONS (3)
  - HAEMORRHAGE [None]
  - COLLAPSE OF LUNG [None]
  - DYSPNOEA EXERTIONAL [None]
